FAERS Safety Report 8570200 (Version 3)
Quarter: 2012Q4

REPORT INFORMATION
  Report Type: 
  Country: TR (occurrence: TR)
  Receive Date: 20120521
  Receipt Date: 20121128
  Transmission Date: 20130627
  Serious: Yes (Other)
  Sender: FDA-Public Use
  Company Number: TR-AMGEN-TURSP2012030702

PATIENT
  Age: 65 Year
  Sex: Male

DRUGS (4)
  1. ENBREL [Suspect]
     Indication: ANKYLOSING SPONDYLITIS
     Dosage: UNK
     Dates: start: 201002, end: 201204
  2. ENBREL [Suspect]
     Dosage: UNK
     Route: 058
     Dates: start: 201206, end: 201211
  3. ENBREL [Suspect]
     Dosage: 50 mg, qwk
     Route: 058
     Dates: start: 20121115
  4. ENBREL [Suspect]
     Dosage: 50 mg, qwk
     Route: 058
     Dates: start: 201202, end: 201206

REACTIONS (2)
  - Drug dependence [Not Recovered/Not Resolved]
  - Injection site pain [Not Recovered/Not Resolved]
